FAERS Safety Report 6575689-1 (Version None)
Quarter: 2010Q1

REPORT INFORMATION
  Report Type: 
  Country: None (occurrence: None)
  Receive Date: 20100209
  Receipt Date: 20100201
  Transmission Date: 20100710
  Serious: No
  Sender: FDA-Public Use
  Company Number: US-B.I. PHARMACEUTICALS,INC./RIDGEFIELD-2009-BP-11783BP

PATIENT
  Sex: Female

DRUGS (15)
  1. SPIRIVA [Suspect]
     Indication: CHRONIC OBSTRUCTIVE PULMONARY DISEASE
     Dosage: 18 MCG
     Route: 055
     Dates: start: 20050101
  2. SPIRIVA [Suspect]
     Indication: EMPHYSEMA
  3. LIPITOR [Concomitant]
     Indication: BLOOD CHOLESTEROL INCREASED
  4. LOVAZA [Concomitant]
     Indication: BLOOD TRIGLYCERIDES INCREASED
  5. LEVOTHYROXINE SODIUM [Concomitant]
     Indication: THYROID DISORDER
  6. LOTHEL [Concomitant]
     Indication: HYPERTENSION
  7. VITAMIN D [Concomitant]
     Indication: SUPPLEMENTATION THERAPY
  8. PREMARIN [Concomitant]
  9. AMLODINE-BENAZEPRIL [Concomitant]
  10. ADVAIR DISKUS 100/50 [Concomitant]
  11. CITALOPRAM HYDROBROMIDE [Concomitant]
  12. LYRICA [Concomitant]
  13. BAYER WOMEN'S ASPIRIN [Concomitant]
  14. ALBUTEROL [Concomitant]
  15. LEVOXYL [Concomitant]
     Indication: SUPPLEMENTATION THERAPY

REACTIONS (1)
  - CHEST DISCOMFORT [None]
